FAERS Safety Report 14896042 (Version 1)
Quarter: 2018Q2

REPORT INFORMATION
  Report Type: Spontaneous
  Country: US (occurrence: US)
  Receive Date: 20180426
  Receipt Date: 20180426
  Transmission Date: 20180711
  Serious: Yes (Other)
  Sender: FDA-Public Use
  Company Number: None

PATIENT
  Age: 15 Year
  Sex: Male
  Weight: 58.5 kg

DRUGS (6)
  1. JUICE PLUS VITAMINS [Concomitant]
  2. TL 708 (TRIGEN METHYLPHENIDATE ER 36 MG) [Suspect]
     Active Substance: METHYLPHENIDATE
     Indication: ATTENTION DEFICIT/HYPERACTIVITY DISORDER
     Dosage: ?          QUANTITY:2 TABLET(S);?
     Route: 048
     Dates: start: 20171201, end: 20171201
  3. CONCERTA [Concomitant]
     Active Substance: METHYLPHENIDATE HYDROCHLORIDE
  4. MELATONIN [Concomitant]
     Active Substance: MELATONIN
  5. CLONIDINE. [Concomitant]
     Active Substance: CLONIDINE
  6. ZYRTEC [Concomitant]
     Active Substance: CETIRIZINE HYDROCHLORIDE

REACTIONS (3)
  - Disturbance in attention [None]
  - Drug ineffective [None]
  - Product substitution issue [None]

NARRATIVE: CASE EVENT DATE: 20171201
